FAERS Safety Report 14119660 (Version 1)
Quarter: 2017Q4

REPORT INFORMATION
  Report Type: Spontaneous
  Country: AU (occurrence: AU)
  Receive Date: 20171024
  Receipt Date: 20171024
  Transmission Date: 20180321
  Serious: Yes (Other)
  Sender: FDA-Public Use
  Company Number: AU-009507513-1710AUS009353

PATIENT

DRUGS (3)
  1. CAPECITABINE. [Suspect]
     Active Substance: CAPECITABINE
  2. SANDOSTATIN [Suspect]
     Active Substance: OCTREOTIDE ACETATE
  3. TEMOZOLOMIDE. [Suspect]
     Active Substance: TEMOZOLOMIDE

REACTIONS (5)
  - Disease progression [Unknown]
  - Drug intolerance [Unknown]
  - Vomiting [Unknown]
  - Neuroectodermal neoplasm [Unknown]
  - Dehydration [Unknown]
